FAERS Safety Report 9916132 (Version 2)
Quarter: 2014Q1

REPORT INFORMATION
  Report Type: Spontaneous
  Country: DE (occurrence: None)
  Receive Date: 20140219
  Receipt Date: 20140227
  Transmission Date: 20141002
  Serious: Yes (Other)
  Sender: FDA-Public Use
  Company Number: 1402-0332

PATIENT
  Sex: 0

DRUGS (1)
  1. EYLEA (AFLIBERCEPT) (SOLUTION FOR INJECTION) (AFLIBERCEPT) [Suspect]
     Indication: RETINAL HAEMORRHAGE
     Dosage: INTRAOCULAR
     Route: 031
     Dates: start: 20140207

REACTIONS (1)
  - Intraocular pressure decreased [None]
